FAERS Safety Report 23345839 (Version 1)
Quarter: 2023Q4

REPORT INFORMATION
  Report Type: Spontaneous
  Country: KR (occurrence: KR)
  Receive Date: 20231228
  Receipt Date: 20231228
  Transmission Date: 20240110
  Serious: Yes (Other)
  Sender: FDA-Public Use
  Company Number: KR-009507513-2312KOR009185

PATIENT
  Sex: Male

DRUGS (2)
  1. KEYTRUDA [Suspect]
     Active Substance: PEMBROLIZUMAB
     Dosage: 200 MILLIGRAM, QD
     Route: 042
     Dates: start: 20221122, end: 20221122
  2. CARBOPLATIN [Suspect]
     Active Substance: CARBOPLATIN
     Dosage: 390 MILLIGRAM, QD
     Route: 042
     Dates: start: 20221122, end: 20221122

REACTIONS (1)
  - Renal impairment [Recovered/Resolved]

NARRATIVE: CASE EVENT DATE: 20221203
